FAERS Safety Report 4519434-X (Version None)
Quarter: 2004Q4

REPORT INFORMATION
  Report Type: 
  Country: None (occurrence: None)
  Receive Date: 20041202
  Receipt Date: 20041117
  Transmission Date: 20050328
  Serious: Yes (Other)
  Sender: FDA-Public Use
  Company Number: 2004066756

PATIENT
  Age: 39 Year
  Sex: Male
  Weight: 85 kg

DRUGS (1)
  1. LIPITOR [Suspect]
     Indication: HYPERCHOLESTEROLAEMIA
     Dosage: 20 MG (20 MG, 1 IN 1D), ORAL
     Route: 048
     Dates: start: 19990101, end: 20040830

REACTIONS (2)
  - HAEMATURIA [None]
  - RHABDOMYOLYSIS [None]
